FAERS Safety Report 16136974 (Version 2)
Quarter: 2019Q2

REPORT INFORMATION
  Report Type: Report from Study
  Country: BR (occurrence: BR)
  Receive Date: 20190329
  Receipt Date: 20190410
  Transmission Date: 20190711
  Serious: Yes (Disabling)
  Sender: FDA-Public Use
  Company Number: PHHY2019BR066451

PATIENT
  Sex: Female

DRUGS (1)
  1. GILENYA [Suspect]
     Active Substance: FINGOLIMOD HYDROCHLORIDE
     Indication: PRODUCT USED FOR UNKNOWN INDICATION
     Dosage: 0.5 MG, UNK
     Route: 065

REACTIONS (6)
  - Feeling of despair [Unknown]
  - Mental fatigue [Unknown]
  - Muscular weakness [Unknown]
  - Disease recurrence [Unknown]
  - Feeling abnormal [Unknown]
  - Anxiety [Unknown]
